FAERS Safety Report 9202510 (Version 1)
Quarter: 2013Q2

REPORT INFORMATION
  Report Type: Spontaneous
  Country: US (occurrence: US)
  Receive Date: 20130401
  Receipt Date: 20130401
  Transmission Date: 20140414
  Serious: Yes (Other)
  Sender: FDA-Public Use
  Company Number: US-ASTRAZENECA-2013SE19345

PATIENT
  Age: 79 Year
  Sex: Female
  Weight: 59.9 kg

DRUGS (13)
  1. NEXIUM [Suspect]
     Indication: HIATUS HERNIA
     Route: 048
     Dates: start: 201111
  2. TOPROL GENERIC [Suspect]
     Indication: HYPERTENSION
     Dosage: DAILY
     Route: 065
  3. OMEPRAZOLE [Suspect]
     Indication: HIATUS HERNIA
     Route: 048
     Dates: start: 2011, end: 201302
  4. OMEPRAZOLE [Suspect]
     Indication: HIATUS HERNIA
     Route: 048
     Dates: start: 201302
  5. CRESTOR [Suspect]
     Indication: BLOOD CHOLESTEROL INCREASED
     Dosage: DAILY
     Route: 048
  6. HYDROCODONE [Concomitant]
     Indication: PAIN
  7. LOMOTIL [Concomitant]
     Indication: IRRITABLE BOWEL SYNDROME
     Dosage: PRN
  8. ALTACE GENERIC [Concomitant]
     Indication: HYPERTENSION
     Dosage: DAILY
  9. PLAVIX [Concomitant]
     Indication: STENT PLACEMENT
  10. FUROSEMIDE [Concomitant]
     Indication: FLUID RETENTION
  11. FUIRCET [Concomitant]
     Indication: MIGRAINE
     Dosage: 325 40 55 PRN
  12. ALPRAZOLAM [Concomitant]
     Indication: ANXIETY
  13. AMITRIPTYLINE [Concomitant]
     Indication: MIGRAINE PROPHYLAXIS

REACTIONS (5)
  - Gastric haemorrhage [Unknown]
  - Anaemia [Unknown]
  - Intentional drug misuse [Unknown]
  - Off label use [Unknown]
  - Off label use [None]
